FAERS Safety Report 23218731 (Version 2)
Quarter: 2024Q1

REPORT INFORMATION
  Report Type: Spontaneous
  Country: US (occurrence: US)
  Receive Date: 20231122
  Receipt Date: 20240207
  Transmission Date: 20240410
  Serious: Yes (Life-Threatening, Hospitalization, Other)
  Sender: FDA-Public Use
  Company Number: US-BRISTOL-MYERS SQUIBB COMPANY-2023-165994

PATIENT
  Age: 82 Year
  Sex: Male
  Weight: 77.11 kg

DRUGS (2)
  1. ELIQUIS [Suspect]
     Active Substance: APIXABAN
     Indication: Atrial fibrillation
     Route: 048
     Dates: end: 2023
  2. ELIQUIS [Suspect]
     Active Substance: APIXABAN
     Dates: start: 202309

REACTIONS (9)
  - Aplastic anaemia [Unknown]
  - Haemoglobin decreased [Recovering/Resolving]
  - Pneumonia [Unknown]
  - T-lymphocyte count abnormal [Unknown]
  - Hepatic cirrhosis [Recovering/Resolving]
  - COVID-19 [Unknown]
  - Pleural effusion [Recovered/Resolved]
  - Cardiac arrest [Unknown]
  - Treatment noncompliance [Unknown]

NARRATIVE: CASE EVENT DATE: 20211201
